FAERS Safety Report 12355231 (Version 1)
Quarter: 2016Q2

REPORT INFORMATION
  Report Type: Spontaneous
  Country: DE (occurrence: DE)
  Receive Date: 20160511
  Receipt Date: 20160511
  Transmission Date: 20160815
  Serious: Yes (Hospitalization)
  Sender: FDA-Public Use
  Company Number: DE-ASTRAZENECA-2016SE49651

PATIENT
  Age: 62 Year
  Sex: Male
  Weight: 122 kg

DRUGS (9)
  1. NOVONOM [Concomitant]
     Dates: start: 201410
  2. BYETTA [Concomitant]
     Active Substance: EXENATIDE
     Dates: start: 201506
  3. NOVONOM [Concomitant]
     Dates: start: 201601
  4. BYDUREON [Suspect]
     Active Substance: EXENATIDE
     Route: 058
     Dates: start: 201403
  5. METFORMIN [Concomitant]
     Active Substance: METFORMIN HYDROCHLORIDE
     Dates: start: 201009, end: 201203
  6. NOVONOM [Concomitant]
     Dates: start: 201503, end: 201601
  7. BYETTA [Concomitant]
     Active Substance: EXENATIDE
     Dates: start: 201503, end: 201506
  8. METFORMIN [Concomitant]
     Active Substance: METFORMIN HYDROCHLORIDE
     Dates: start: 201203
  9. METFORMIN [Concomitant]
     Active Substance: METFORMIN HYDROCHLORIDE
     Dates: start: 201403

REACTIONS (1)
  - Benign prostatic hyperplasia [Unknown]

NARRATIVE: CASE EVENT DATE: 201410
